FAERS Safety Report 16072459 (Version 1)
Quarter: 2019Q1

REPORT INFORMATION
  Report Type: Spontaneous
  Country: NL (occurrence: NL)
  Receive Date: 20190314
  Receipt Date: 20190314
  Transmission Date: 20190418
  Serious: Yes (Other)
  Sender: FDA-Public Use
  Company Number: NL-TEVA-2019-NL-1023622

PATIENT
  Sex: Male
  Weight: 88 kg

DRUGS (2)
  1. FINASTERIDE TABLET, 5 MG (MILLIGRAM) [Suspect]
     Active Substance: FINASTERIDE
     Indication: PROSTATIC DISORDER
     Dosage: 1 DOSAGE FORMS DAILY;
     Dates: start: 201804, end: 201807
  2. EZETIMIBE 10 MG [Concomitant]
     Active Substance: EZETIMIBE

REACTIONS (2)
  - Arrhythmia [Recovering/Resolving]
  - Palpitations [Recovering/Resolving]
